FAERS Safety Report 7437693-0 (Version None)
Quarter: 2011Q2

REPORT INFORMATION
  Report Type: 
  Country: None (occurrence: None)
  Receive Date: 20110426
  Receipt Date: 20110419
  Transmission Date: 20111010
  Serious: Yes (Hospitalization, Other)
  Sender: FDA-Public Use
  Company Number: US-ABBOTT-11P-163-0720232-00

PATIENT
  Sex: Male
  Weight: 124.85 kg

DRUGS (7)
  1. SALEX [Concomitant]
     Indication: PSORIASIS
  2. PSORENT [Concomitant]
     Indication: PSORIASIS
  3. DERM SS SCALP SOLUTION [Concomitant]
     Indication: PSORIASIS
  4. CHOBETASOL [Concomitant]
     Indication: PSORIASIS
  5. HUMIRA [Suspect]
     Indication: PSORIASIS
     Dates: start: 20100817, end: 20110412
  6. DERMOTIC [Concomitant]
     Indication: PSORIASIS
  7. SALAX  SHAMPOO [Concomitant]
     Indication: PSORIASIS

REACTIONS (13)
  - FATIGUE [None]
  - WEIGHT DECREASED [None]
  - MYOSITIS [None]
  - SCIATICA [None]
  - MASS [None]
  - DEHYDRATION [None]
  - ABDOMINAL MASS [None]
  - VOMITING [None]
  - NON-HODGKIN'S LYMPHOMA [None]
  - BACK PAIN [None]
  - HYPOAESTHESIA [None]
  - PAIN IN EXTREMITY [None]
  - LYMPHADENOPATHY [None]
